FAERS Safety Report 9699770 (Version 2)
Quarter: 2014Q2

REPORT INFORMATION
  Report Type: Report from Study
  Country: US (occurrence: US)
  Receive Date: 20131120
  Receipt Date: 20140403
  Transmission Date: 20141212
  Serious: Yes (Hospitalization, Other)
  Sender: FDA-Public Use
  Company Number: US-ROCHE-1304461

PATIENT
  Sex: Female

DRUGS (19)
  1. XOLAIR [Suspect]
     Indication: PRODUCT USED FOR UNKNOWN INDICATION
     Dosage: DATE OF MOST RECENT DOSE PRIOR TO EVENT: 24/OCT/2013
     Route: 065
  2. VALIUM [Suspect]
     Indication: PRODUCT USED FOR UNKNOWN INDICATION
     Route: 065
  3. TRIAMCINOLONE ACETONIDE [Concomitant]
     Dosage: 30 DAYS
     Route: 065
  4. IPRATROPIUM BROMIDE [Concomitant]
     Dosage: Q4H-6H
     Route: 065
  5. XANAX [Concomitant]
     Dosage: UUD 30 DAYS
     Route: 065
  6. TESSALON [Concomitant]
     Dosage: UUD 30 DAYS
     Route: 065
  7. DOXEPIN [Concomitant]
     Dosage: UUD 30 DAYS
     Route: 065
  8. PREDNISONE [Concomitant]
     Dosage: ASORD 5 DAYS
     Route: 065
  9. HYDROXYZINE [Concomitant]
     Dosage: 30 DAYS
     Route: 065
  10. ASTEPRO [Concomitant]
     Dosage: ASORD 30 DAYS
     Route: 065
  11. OMNARIS [Concomitant]
     Dosage: 50 MCG/ACT SUSPENSION, 30 DAYS
     Route: 065
  12. ASMANEX [Concomitant]
     Dosage: METERED DOSE, 30 DAYS
     Route: 065
  13. NASONEX [Concomitant]
     Dosage: 50 MCG/ACT SUSPENSION, 30 DAYS
     Route: 065
  14. PATADAY [Concomitant]
     Dosage: 0.2% SOLUTION 30 DAYS
     Route: 065
  15. NASACORT [Concomitant]
     Dosage: 55MCG/ACT, 30 DAYS
     Route: 065
  16. SINGULAIR [Concomitant]
     Dosage: 30 DAYS
     Route: 065
  17. VENTOLIN HFA [Concomitant]
     Dosage: Q4H6H
     Route: 065
  18. EPIPEN [Concomitant]
     Dosage: 0.3MG/0.3ML AS ORDERED 30 DAYS
     Route: 065
  19. CUTIVATE [Concomitant]
     Dosage: 0.05% AS ORDERED 30 DAYS
     Route: 065

REACTIONS (26)
  - Dyspnoea [Unknown]
  - Urticaria [Unknown]
  - Pharyngeal oedema [Unknown]
  - Flushing [Unknown]
  - Paranasal sinus discomfort [Unknown]
  - Nasal congestion [Unknown]
  - Oropharyngeal pain [Unknown]
  - Pruritus [Unknown]
  - Chest discomfort [Unknown]
  - Fatigue [Unknown]
  - Upper-airway cough syndrome [Unknown]
  - Nasal obstruction [Unknown]
  - Headache [Unknown]
  - Eye allergy [Unknown]
  - Rash [Unknown]
  - Ear discomfort [Unknown]
  - Tinnitus [Unknown]
  - Throat irritation [Unknown]
  - Nasal discomfort [Unknown]
  - Epistaxis [Unknown]
  - Dry mouth [Unknown]
  - Arthralgia [Unknown]
  - Malaise [Unknown]
  - Chest pain [Unknown]
  - Tachycardia [Unknown]
  - Dry skin [Unknown]
